FAERS Safety Report 24894556 (Version 1)
Quarter: 2025Q1

REPORT INFORMATION
  Report Type: Spontaneous
  Country: TW (occurrence: TW)
  Receive Date: 20250128
  Receipt Date: 20250128
  Transmission Date: 20250408
  Serious: Yes (Death, Life-Threatening, Other)
  Sender: AMGEN
  Company Number: TW-AMGEN-TWNSP2024257674

PATIENT
  Sex: Male

DRUGS (2)
  1. XGEVA [Suspect]
     Active Substance: DENOSUMAB
     Indication: Lung neoplasm malignant
     Route: 065
  2. XGEVA [Suspect]
     Active Substance: DENOSUMAB
     Indication: Metastases to bone

REACTIONS (4)
  - Pneumonia [Unknown]
  - Death [Fatal]
  - Renal impairment [Unknown]
  - Pain [Unknown]
